FAERS Safety Report 5206513-7 (Version None)
Quarter: 2006Q4

REPORT INFORMATION
  Report Type: 
  Country: None (occurrence: None)
  Receive Date: 20061026
  Receipt Date: 20060823
  Transmission Date: 20070319
  Serious: No
  Sender: FDA-Public Use
  Company Number: 2006104207

PATIENT
  Age: 78 Year
  Sex: Female
  Weight: 68.0396 kg

DRUGS (10)
  1. LYRICA [Suspect]
     Indication: NEUROPATHY
     Dosage: 150 MG (75 MG, FREQUENCY:BID INTERVAL: EVERY DAY
     Dates: start: 20060531
  2. NEURONTIN [Suspect]
     Indication: NEUROPATHY
     Dates: end: 20060101
  3. DRUG, UNSPECIFIED ( DRUG, UNSPECIFIED ) [Suspect]
     Indication: DRUG USE FOR UNKNOWN INDICATION
     Route: 065
  4. PREMARIN [Concomitant]
  5. HYDROCHLOROTHIAZIDE/ TRIAMTERENE ( HYDROCHLOROTHIAZIDE/ TRIAMTERENE ) [Concomitant]
  6. ALL OTHER THERAPEUTIC PRODUCTS ( ALL OTHER THERAPEUTIC PRODUCTS) [Concomitant]
  7. PREMARIN [Concomitant]
  8. VITAMIN C (VITAMIN C) [Concomitant]
  9. KLOR-CON [Concomitant]
  10. MULTIVITAMIN [Concomitant]

REACTIONS (13)
  - BODY HEIGHT DECREASED [None]
  - BURNING SENSATION [None]
  - CONSTIPATION [None]
  - CYSTITIS [None]
  - DIZZINESS [None]
  - DRUG INEFFECTIVE [None]
  - DRY MOUTH [None]
  - FLUID RETENTION [None]
  - HYPOAESTHESIA [None]
  - INFLUENZA [None]
  - MYALGIA [None]
  - SOMNOLENCE [None]
  - URINE OUTPUT INCREASED [None]
